FAERS Safety Report 23503715 (Version 2)
Quarter: 2024Q1

REPORT INFORMATION
  Report Type: Report from Study
  Country: JP (occurrence: JP)
  Receive Date: 20240209
  Receipt Date: 20240322
  Transmission Date: 20240410
  Serious: Yes (Other)
  Sender: FDA-Public Use
  Company Number: JP-GSK-JP2023JPN165831

PATIENT

DRUGS (11)
  1. BELIMUMAB [Suspect]
     Active Substance: BELIMUMAB
     Indication: Systemic lupus erythematosus
     Dosage: 200 MG, WE
     Route: 058
     Dates: start: 20180414, end: 20180924
  2. BELIMUMAB [Suspect]
     Active Substance: BELIMUMAB
     Dosage: 200 MG, WE
     Route: 058
     Dates: start: 20181001, end: 20190412
  3. ENTECAVIR [Suspect]
     Active Substance: ENTECAVIR
  4. PREDNISOLONE [Concomitant]
     Active Substance: PREDNISOLONE
     Indication: Systemic lupus erythematosus
     Dosage: 7 MG, QD
     Route: 048
     Dates: start: 20180414, end: 20180804
  5. PREDNISOLONE [Concomitant]
     Active Substance: PREDNISOLONE
     Dosage: 6 MG, QD
     Route: 048
     Dates: start: 20180805, end: 20190105
  6. PREDNISOLONE [Concomitant]
     Active Substance: PREDNISOLONE
     Dosage: 5 MG, QD
     Route: 048
     Dates: start: 20190106
  7. CELECOXIB [Concomitant]
     Active Substance: CELECOXIB
     Indication: Systemic lupus erythematosus
  8. REBAMIPIDE [Concomitant]
     Active Substance: REBAMIPIDE
     Indication: Gastritis prophylaxis
  9. MIZORIBINE [Concomitant]
     Active Substance: MIZORIBINE
     Indication: Systemic lupus erythematosus
  10. BONVIVA [Concomitant]
     Active Substance: IBANDRONATE SODIUM
  11. TENOFOVIR DISOPROXIL FUMARATE [Concomitant]
     Active Substance: TENOFOVIR DISOPROXIL FUMARATE
     Dosage: UNK
     Dates: start: 20181113, end: 20190502

REACTIONS (1)
  - Hypokalaemia [Recovered/Resolved]

NARRATIVE: CASE EVENT DATE: 20181015
